FAERS Safety Report 16313648 (Version 2)
Quarter: 2019Q3

REPORT INFORMATION
  Report Type: Spontaneous
  Country: DE (occurrence: DE)
  Receive Date: 20190515
  Receipt Date: 20190912
  Transmission Date: 20191004
  Serious: Yes (Death, Life-Threatening, Hospitalization, Other)
  Sender: FDA-Public Use
  Company Number: DE-PFIZER INC-2019205900

PATIENT
  Age: 50 Year
  Sex: Male

DRUGS (7)
  1. DIAZEPAM. [Concomitant]
     Active Substance: DIAZEPAM
     Indication: WITHDRAWAL SYNDROME
     Dosage: 1 DF, AS NEEDED  PRN (1 DF, MAX. 8X / 24H, 2H IF REQUIRED)
     Dates: start: 20171214
  2. OXCARBAZEPIN [Concomitant]
     Active Substance: OXCARBAZEPINE
     Indication: PROPHYLAXIS AGAINST ALCOHOLIC WITHDRAWAL SYNDROME
     Dosage: UNK
  3. VITAMIN B1 [Concomitant]
     Active Substance: THIAMINE HYDROCHLORIDE
     Dosage: 200 MG, 1X/DAY
     Route: 048
  4. CATAPRESAN [CLONIDINE HYDROCHLORIDE] [Concomitant]
     Active Substance: CLONIDINE HYDROCHLORIDE
     Indication: BLOOD PRESSURE ABNORMAL
     Dosage: 1 DF, AS NEEDED PRN (MAX. 5X / 24H, 3H IF REQUIRED)
     Route: 048
  5. ACC 200 [Concomitant]
     Active Substance: ACETYLCYSTEINE
     Indication: COUGH
     Dosage: 200 MG, 3X/DAY  Q8H
     Route: 048
     Dates: start: 20171214
  6. VITAMIN B COMPLEX [CALCIUM PANTOTHENATE;NICOTINAMIDE;PYRIDOXINE HYDROC [Concomitant]
     Dosage: 1 DF, 1X/DAY
     Route: 048
  7. RAMIPRIL. [Suspect]
     Active Substance: RAMIPRIL
     Indication: HYPERTENSION
     Dosage: 5 MG, 1X/DAY (1 DF, MAX. 2X / 24H, 6H IF REQUIRED)
     Route: 048
     Dates: start: 20171214, end: 20171214

REACTIONS (2)
  - Angioedema [Fatal]
  - Drug hypersensitivity [Unknown]

NARRATIVE: CASE EVENT DATE: 20171214
